FAERS Safety Report 6342990-6 (Version None)
Quarter: 2009Q3

REPORT INFORMATION
  Report Type: 
  Country: None (occurrence: None)
  Receive Date: 20090908
  Receipt Date: 20090831
  Transmission Date: 20100115
  Serious: Yes (Death, Other)
  Sender: FDA-Public Use
  Company Number: DK-BRISTOL-MYERS SQUIBB COMPANY-14767586

PATIENT
  Age: 60 Year
  Sex: Male

DRUGS (2)
  1. METFORMIN HCL [Suspect]
     Indication: TYPE 2 DIABETES MELLITUS
     Route: 048
  2. CORODIL [Concomitant]
     Dosage: CORODIL TABLET
     Route: 048

REACTIONS (5)
  - BLOOD CREATININE INCREASED [None]
  - BRADYCARDIA [None]
  - CARDIAC FAILURE [None]
  - LACTIC ACIDOSIS [None]
  - METABOLIC ACIDOSIS [None]
